FAERS Safety Report 12538172 (Version 2)
Quarter: 2016Q3

REPORT INFORMATION
  Report Type: Report from Study
  Country: US (occurrence: US)
  Receive Date: 20160707
  Receipt Date: 20160721
  Transmission Date: 20161109
  Serious: Yes (Hospitalization)
  Sender: FDA-Public Use
  Company Number: US-ABBVIE-16K-163-1666588-00

PATIENT
  Age: 65 Year
  Sex: Female

DRUGS (10)
  1. SYNTHROID [Concomitant]
     Active Substance: LEVOTHYROXINE SODIUM
     Indication: HYPOTHYROIDISM
  2. OXYCODONE [Concomitant]
     Active Substance: OXYCODONE
     Indication: PRODUCT USED FOR UNKNOWN INDICATION
  3. VITAMIN B12 [Concomitant]
     Active Substance: CYANOCOBALAMIN
     Indication: PRODUCT USED FOR UNKNOWN INDICATION
  4. IMURAN [Suspect]
     Active Substance: AZATHIOPRINE
     Indication: CROHN^S DISEASE
     Route: 065
  5. VITAMIN D [Concomitant]
     Active Substance: CHOLECALCIFEROL
     Indication: PRODUCT USED FOR UNKNOWN INDICATION
  6. HUMIRA [Suspect]
     Active Substance: ADALIMUMAB
     Indication: CROHN^S DISEASE
     Route: 058
     Dates: start: 20140308, end: 2016
  7. PEPCID [Concomitant]
     Active Substance: FAMOTIDINE
     Indication: PRODUCT USED FOR UNKNOWN INDICATION
  8. CELEBREX [Concomitant]
     Active Substance: CELECOXIB
     Indication: PRODUCT USED FOR UNKNOWN INDICATION
  9. TOPROL XL [Concomitant]
     Active Substance: METOPROLOL SUCCINATE
     Indication: PRODUCT USED FOR UNKNOWN INDICATION
  10. HUMIRA [Suspect]
     Active Substance: ADALIMUMAB
     Route: 058
     Dates: start: 20160603

REACTIONS (12)
  - Diverticulum [Recovering/Resolving]
  - Tumour exudation [Recovering/Resolving]
  - Crohn^s disease [Recovering/Resolving]
  - Tumour necrosis [Recovering/Resolving]
  - Haemorrhoids [Recovering/Resolving]
  - Benign small intestinal neoplasm [Recovering/Resolving]
  - Intestinal ulcer [Recovering/Resolving]
  - Small intestinal obstruction [Recovering/Resolving]
  - Ileal stenosis [Recovering/Resolving]
  - Hepatic enzyme increased [Recovering/Resolving]
  - Postoperative adhesion [Recovered/Resolved]
  - Tumour ulceration [Recovering/Resolving]

NARRATIVE: CASE EVENT DATE: 2016
